FAERS Safety Report 5519972-7 (Version None)
Quarter: 2007Q4

REPORT INFORMATION
  Report Type: 
  Country: None (occurrence: None)
  Receive Date: 20071116
  Receipt Date: 20070515
  Transmission Date: 20080405
  Serious: No
  Sender: FDA-Public Use
  Company Number: US-BRISTOL-MYERS SQUIBB COMPANY-13781091

PATIENT
  Age: 61 Year
  Sex: Female

DRUGS (2)
  1. QUESTRAN [Suspect]
     Indication: DIARRHOEA
     Route: 048
  2. PREVALITE [Suspect]
     Indication: DIARRHOEA
     Route: 048

REACTIONS (2)
  - DIARRHOEA [None]
  - WEIGHT GAIN POOR [None]
